FAERS Safety Report 8531114-2 (Version None)
Quarter: 2012Q3

REPORT INFORMATION
  Report Type: 
  Country: None (occurrence: None)
  Receive Date: 20120723
  Receipt Date: 20120712
  Transmission Date: 20120928
  Serious: Yes (Hospitalization)
  Sender: FDA-Public Use
  Company Number: BR-ASTRAZENECA-2012SE48760

PATIENT
  Age: 90 Year
  Sex: Female
  Weight: 52 kg

DRUGS (6)
  1. ATACAND [Suspect]
     Indication: HYPERTENSION
     Route: 048
  2. PANTOPRAZOLE [Concomitant]
  3. CAPTOPRIL [Concomitant]
  4. SIMVASTATIN [Concomitant]
  5. METICORTEN [Concomitant]
  6. LASIX [Concomitant]
     Route: 048

REACTIONS (5)
  - SWELLING [None]
  - DYSPNOEA [None]
  - PULMONARY OEDEMA [None]
  - BLOOD PRESSURE FLUCTUATION [None]
  - CEREBROVASCULAR ACCIDENT [None]
